FAERS Safety Report 24752654 (Version 3)
Quarter: 2025Q3

REPORT INFORMATION
  Report Type: Spontaneous
  Country: US (occurrence: US)
  Receive Date: 20241219
  Receipt Date: 20250710
  Transmission Date: 20251020
  Serious: No
  Sender: ROCHE
  Company Number: US-ROCHE-10000161591

PATIENT
  Age: 64 Year
  Sex: Female
  Weight: 90.72 kg

DRUGS (3)
  1. XOLAIR PFS [Suspect]
     Active Substance: OMALIZUMAB
     Indication: Urticaria
     Route: 058
  2. XOLAIR PFS [Suspect]
     Active Substance: OMALIZUMAB
     Route: 058
     Dates: start: 2021
  3. ZYRTEC [Suspect]
     Active Substance: CETIRIZINE HYDROCHLORIDE
     Indication: Urticaria
     Route: 048

REACTIONS (6)
  - Off label use [Unknown]
  - Product dose omission issue [Unknown]
  - COVID-19 [Recovered/Resolved]
  - Somnolence [Recovered/Resolved]
  - Device issue [Unknown]
  - Urticaria [Unknown]

NARRATIVE: CASE EVENT DATE: 20250501
